FAERS Safety Report 18064064 (Version 2)
Quarter: 2020Q3

REPORT INFORMATION
  Report Type: Spontaneous
  Country: US (occurrence: US)
  Receive Date: 20200724
  Receipt Date: 20200914
  Transmission Date: 20201103
  Serious: Yes (Other)
  Sender: FDA-Public Use
  Company Number: US-ALEXION-A202010496

PATIENT
  Sex: Female

DRUGS (1)
  1. KANUMA [Suspect]
     Active Substance: SEBELIPASE ALFA
     Indication: LYSOSOMAL ACID LIPASE DEFICIENCY
     Dosage: 5 MG/KG, QW
     Route: 065

REACTIONS (4)
  - Diarrhoea [Not Recovered/Not Resolved]
  - Cardiac disorder [Unknown]
  - Abdominal distension [Not Recovered/Not Resolved]
  - Adverse reaction [Unknown]
